FAERS Safety Report 10817697 (Version 1)
Quarter: 2015Q1

REPORT INFORMATION
  Report Type: Report from Study
  Country: US (occurrence: US)
  Receive Date: 20150218
  Receipt Date: 20150218
  Transmission Date: 20150721
  Serious: No
  Sender: FDA-Public Use
  Company Number: US-ABBVIE-14K-163-1288071-00

PATIENT
  Age: 70 Year
  Sex: Male

DRUGS (10)
  1. HUMIRA [Suspect]
     Active Substance: ADALIMUMAB
     Indication: COLITIS ULCERATIVE
     Route: 065
     Dates: start: 20140809
  2. B-100 [Concomitant]
     Indication: PRODUCT USED FOR UNKNOWN INDICATION
  3. DELZICOL [Concomitant]
     Active Substance: MESALAMINE
     Indication: PRODUCT USED FOR UNKNOWN INDICATION
  4. MULTIVITAMIN [Concomitant]
     Active Substance: VITAMINS
     Indication: PRODUCT USED FOR UNKNOWN INDICATION
  5. PREDNISONE. [Concomitant]
     Active Substance: PREDNISONE
     Dosage: DOWN TO 10 MG DAILY
     Dates: start: 2014
  6. PREDNISONE. [Concomitant]
     Active Substance: PREDNISONE
     Dates: start: 2014
  7. PREDNISONE. [Concomitant]
     Active Substance: PREDNISONE
     Indication: PRODUCT USED FOR UNKNOWN INDICATION
     Dosage: TAPER WITH CURRENT DOSE
     Dates: start: 201406
  8. 6-MP [Concomitant]
     Active Substance: MERCAPTOPURINE
     Indication: COLITIS ULCERATIVE
  9. 6-MP [Concomitant]
     Active Substance: MERCAPTOPURINE
  10. PREDNISONE. [Concomitant]
     Active Substance: PREDNISONE
     Dosage: FOR ABOUT 3 WEEKS
     Dates: start: 2014

REACTIONS (5)
  - Flatulence [Not Recovered/Not Resolved]
  - Dyspnoea [Unknown]
  - Limb injury [Unknown]
  - Contusion [Not Recovered/Not Resolved]
  - Drug effect incomplete [Not Recovered/Not Resolved]

NARRATIVE: CASE EVENT DATE: 2014
